FAERS Safety Report 15271302 (Version 1)
Quarter: 2018Q3

REPORT INFORMATION
  Report Type: Spontaneous
  Country: US (occurrence: US)
  Receive Date: 20180727
  Receipt Date: 20180727
  Transmission Date: 20181010
  Serious: No
  Sender: FDA-Public Use
  Company Number: None

PATIENT
  Age: 44 Year
  Sex: Male
  Weight: 162 kg

DRUGS (8)
  1. TRINTELLIX [Suspect]
     Active Substance: VORTIOXETINE HYDROBROMIDE
     Indication: DEPRESSION
     Route: 048
     Dates: start: 20180209, end: 20180629
  2. VITAMIN D/OMEGA 3 [Concomitant]
  3. LIPITOR [Concomitant]
     Active Substance: ATORVASTATIN CALCIUM
  4. BRINTELLIX [Suspect]
     Active Substance: VORTIOXETINE HYDROBROMIDE
  5. LISINOPRIL. [Concomitant]
     Active Substance: LISINOPRIL
  6. CPAP [Concomitant]
     Active Substance: DEVICE
  7. ASPIRIN. [Concomitant]
     Active Substance: ASPIRIN
  8. COQ10 [Concomitant]
     Active Substance: UBIDECARENONE

REACTIONS (3)
  - Nausea [None]
  - Vomiting [None]
  - Lipase increased [None]

NARRATIVE: CASE EVENT DATE: 20180628
